FAERS Safety Report 6182855-6 (Version None)
Quarter: 2009Q2

REPORT INFORMATION
  Report Type: 
  Country: None (occurrence: None)
  Receive Date: 20090507
  Receipt Date: 20090429
  Transmission Date: 20091009
  Serious: Yes (Hospitalization)
  Sender: FDA-Public Use
  Company Number: CH-GENENTECH-282282

PATIENT
  Age: 54 Year
  Sex: Male

DRUGS (5)
  1. RAPTIVA [Suspect]
     Indication: PSORIASIS
     Dosage: 0.7 MG/KG, UNK
     Dates: start: 20061013
  2. RAPTIVA [Suspect]
     Dosage: 1 MG/KG, UNK
     Dates: end: 20080101
  3. RAPTIVA [Suspect]
     Dosage: 1 MG/KG, UNK
     Dates: start: 20080101
  4. DAIVOBET [Concomitant]
     Indication: DRUG USE FOR UNKNOWN INDICATION
     Dosage: UNK
     Dates: start: 20070202
  5. DAIVONEX [Concomitant]
     Indication: DRUG USE FOR UNKNOWN INDICATION
     Dosage: UNK
     Dates: start: 20070202

REACTIONS (1)
  - SCHIZOPHRENIA [None]
